FAERS Safety Report 7722221-2 (Version None)
Quarter: 2011Q3

REPORT INFORMATION
  Report Type: 
  Country: None (occurrence: None)
  Receive Date: 20110831
  Receipt Date: 20110826
  Transmission Date: 20111222
  Serious: Yes (Other)
  Sender: FDA-Public Use
  Company Number: FR-PFIZER INC-2011019658

PATIENT
  Age: 39 Year
  Sex: Female

DRUGS (2)
  1. CYTOTEC [Suspect]
     Indication: METRORRHAGIA
     Dosage: 2 SCORED TABLETS OF 200 UG, SINGLE
     Dates: start: 20061128, end: 20061128
  2. CYTOTEC [Suspect]
     Indication: OFF LABEL USE

REACTIONS (4)
  - ANTEPARTUM HAEMORRHAGE [None]
  - UTERINE CONTRACTIONS DURING PREGNANCY [None]
  - UTERINE LEIOMYOMA [None]
  - DRUG INEFFECTIVE FOR UNAPPROVED INDICATION [None]
